FAERS Safety Report 19070139 (Version 1)
Quarter: 2021Q1

REPORT INFORMATION
  Report Type: Spontaneous
  Country: CN (occurrence: CN)
  Receive Date: 20210329
  Receipt Date: 20210329
  Transmission Date: 20210420
  Serious: Yes (Disabling, Other)
  Sender: FDA-Public Use
  Company Number: CN-PFIZER INC-2021307708

PATIENT
  Age: 45 Year
  Sex: Male
  Weight: 80 kg

DRUGS (11)
  1. SOLU?MEDROL [Suspect]
     Active Substance: METHYLPREDNISOLONE SODIUM SUCCINATE
     Dosage: 40.000 MG, 1X/DAY
     Route: 041
     Dates: start: 20210303, end: 20210307
  2. ATORVASTATIN CALCIUM. [Suspect]
     Active Substance: ATORVASTATIN CALCIUM
     Indication: PLAQUE SHIFT
  3. SOLU?MEDROL [Suspect]
     Active Substance: METHYLPREDNISOLONE SODIUM SUCCINATE
     Indication: MARFAN^S SYNDROME
     Dosage: 240.000 MG, 3X/DAY
     Route: 041
     Dates: start: 20210225, end: 20210226
  4. SOLU?MEDROL [Suspect]
     Active Substance: METHYLPREDNISOLONE SODIUM SUCCINATE
     Dosage: 120 MG, 2X/DAY
     Route: 041
     Dates: start: 20210301, end: 20210301
  5. SODIUM CHLORIDE. [Concomitant]
     Active Substance: SODIUM CHLORIDE
     Dosage: 250 ML, 1X/DAY
     Route: 041
     Dates: start: 20210303, end: 20210307
  6. SODIUM CHLORIDE. [Concomitant]
     Active Substance: SODIUM CHLORIDE
     Indication: VEHICLE SOLUTION USE
     Dosage: 250.000 ML, 3X/DAY
     Route: 041
     Dates: start: 20210225, end: 20210228
  7. SOLU?MEDROL [Suspect]
     Active Substance: METHYLPREDNISOLONE SODIUM SUCCINATE
     Dosage: 120.000 MG, 3X/DAY
     Route: 041
     Dates: start: 20210227, end: 20210228
  8. ATORVASTATIN CALCIUM. [Suspect]
     Active Substance: ATORVASTATIN CALCIUM
     Indication: LIPIDS INCREASED
     Dosage: 20.000 MG, 1X/DAY
     Route: 048
     Dates: start: 20210228, end: 20210311
  9. SOLU?MEDROL [Suspect]
     Active Substance: METHYLPREDNISOLONE SODIUM SUCCINATE
     Dosage: 20 MG, 1X/DAY
     Route: 041
     Dates: start: 20210308, end: 20210309
  10. SODIUM CHLORIDE. [Concomitant]
     Active Substance: SODIUM CHLORIDE
     Dosage: 250 ML, 2X/DAY
     Route: 041
     Dates: start: 20210301, end: 20210302
  11. SOLU?MEDROL [Suspect]
     Active Substance: METHYLPREDNISOLONE SODIUM SUCCINATE
     Dosage: 60.000 MG, 2X/DAY
     Route: 041
     Dates: start: 20210302, end: 20210302

REACTIONS (1)
  - Hepatic function abnormal [Unknown]

NARRATIVE: CASE EVENT DATE: 20210307
